FAERS Safety Report 4804058-7 (Version None)
Quarter: 2005Q4

REPORT INFORMATION
  Report Type: 
  Country: None (occurrence: None)
  Receive Date: 20051018
  Receipt Date: 20051018
  Transmission Date: 20060501
  Serious: No
  Sender: FDA-Public Use
  Company Number: None

PATIENT
  Sex: Male
  Weight: 83.0083 kg

DRUGS (4)
  1. LEVOTHYROXINE [Suspect]
     Dosage: 112 MG PO 1 QD
     Route: 048
     Dates: start: 20040706, end: 20051014
  2. LOPID [Concomitant]
  3. DIOVAN [Concomitant]
  4. ASPIRIN [Concomitant]

REACTIONS (3)
  - MUSCLE SPASMS [None]
  - MYALGIA [None]
  - THERAPEUTIC RESPONSE UNEXPECTED WITH DRUG SUBSTITUTION [None]
